FAERS Safety Report 20005735 (Version 1)
Quarter: 2021Q4

REPORT INFORMATION
  Report Type: Spontaneous
  Country: US (occurrence: US)
  Receive Date: 20211028
  Receipt Date: 20211028
  Transmission Date: 20220303
  Serious: Yes (Other)
  Sender: FDA-Public Use
  Company Number: None

PATIENT
  Age: 62 Year
  Sex: Female
  Weight: 124 kg

DRUGS (2)
  1. DESVENLAFAXINE [Suspect]
     Active Substance: DESVENLAFAXINE
     Indication: Major depression
     Route: 048
     Dates: start: 20190101, end: 20190301
  2. PRISTIQ EXTENDED-RELEASE [Concomitant]
     Active Substance: DESVENLAFAXINE SUCCINATE
     Dates: start: 20190401, end: 20211028

REACTIONS (2)
  - Insomnia [None]
  - Paraesthesia oral [None]

NARRATIVE: CASE EVENT DATE: 20190101
